FAERS Safety Report 9996665 (Version 1)
Quarter: 2014Q1

REPORT INFORMATION
  Report Type: Spontaneous
  Country: US (occurrence: US)
  Receive Date: 20140311
  Receipt Date: 20140311
  Transmission Date: 20141002
  Serious: No
  Sender: FDA-Public Use
  Company Number: US-GLAXOSMITHKLINE-A1011629A

PATIENT
  Age: 70 Year
  Sex: Male

DRUGS (2)
  1. NICORETTE FRUIT CHILL OTC 4MG [Suspect]
     Indication: EX-TOBACCO USER
     Dates: start: 20130208, end: 20130208
  2. IRON SUPPLEMENT [Suspect]

REACTIONS (5)
  - Vomiting [Recovered/Resolved]
  - Oral discomfort [Recovered/Resolved]
  - Oropharyngeal pain [Not Recovered/Not Resolved]
  - Hypersensitivity [Not Recovered/Not Resolved]
  - Drug interaction [Not Recovered/Not Resolved]
